FAERS Safety Report 5557408-0 (Version None)
Quarter: 2007Q4

REPORT INFORMATION
  Report Type: 
  Country: None (occurrence: None)
  Receive Date: 20071214
  Receipt Date: 20071203
  Transmission Date: 20080405
  Serious: Yes (Other)
  Sender: FDA-Public Use
  Company Number: JP-SANOFI-SYNTHELABO-A01200713898

PATIENT
  Sex: Male

DRUGS (1)
  1. MYSLEE [Suspect]
     Dosage: ZOLPIDEM WAS PRESCRIBED AT A DAILY DOSE OF 10 MG, BUT EXACT DOSE TAKEN WAS UNSKNOWN UNK
     Route: 048

REACTIONS (2)
  - MULTIPLE DRUG OVERDOSE INTENTIONAL [None]
  - ROAD TRAFFIC ACCIDENT [None]
